FAERS Safety Report 7505993-1 (Version None)
Quarter: 2011Q2

REPORT INFORMATION
  Report Type: 
  Country: None (occurrence: None)
  Receive Date: 20110526
  Receipt Date: 20110524
  Transmission Date: 20111010
  Serious: Yes (Death)
  Sender: FDA-Public Use
  Company Number: PHHY2011US23834

PATIENT
  Sex: Male

DRUGS (11)
  1. ALBUTEROL SULFATE AUTOHALER [Concomitant]
  2. RECLAST [Suspect]
     Dosage: 5 MG
     Route: 042
  3. CALCIUM CARBONATE [Concomitant]
  4. FLORINEF [Concomitant]
  5. LAMICTAL [Concomitant]
  6. CORTEF [Concomitant]
  7. VITAMIN B-12 [Concomitant]
  8. FOLIC ACID [Concomitant]
  9. NITROFURANTOIN [Concomitant]
  10. LASIX [Concomitant]
  11. LEVOTHYROXINE SODIUM [Concomitant]

REACTIONS (4)
  - DECUBITUS ULCER [None]
  - HYPOXIA [None]
  - ARRHYTHMIA [None]
  - PNEUMONIA ASPIRATION [None]
